FAERS Safety Report 6630534-0 (Version None)
Quarter: 2010Q1

REPORT INFORMATION
  Report Type: 
  Country: None (occurrence: None)
  Receive Date: 20100311
  Receipt Date: 20090629
  Transmission Date: 20100710
  Serious: No
  Sender: FDA-Public Use
  Company Number: US-BIOGENIDEC-2009BI019888

PATIENT
  Sex: Female

DRUGS (9)
  1. AVONEX [Suspect]
     Indication: MULTIPLE SCLEROSIS
     Route: 030
     Dates: start: 19990101, end: 20011201
  2. AVONEX [Suspect]
     Route: 030
     Dates: start: 20090619
  3. BACLOFEN [Concomitant]
     Indication: MUSCULOSKELETAL STIFFNESS
     Dates: start: 20071101
  4. PROVIGIL [Concomitant]
     Indication: ASTHENIA
     Dates: start: 20071101
  5. TYLENOL-500 [Concomitant]
     Indication: PREMEDICATION
  6. ACAI [Concomitant]
     Indication: DRUG USE FOR UNKNOWN INDICATION
  7. DETROL LA [Concomitant]
     Indication: BLADDER DISORDER
  8. MECLIZINE [Concomitant]
     Indication: BALANCE DISORDER
     Dates: start: 20040101
  9. LAMICTAL [Concomitant]
     Indication: CONVULSION
     Dates: start: 20071101

REACTIONS (5)
  - ASTHENIA [None]
  - BLADDER DISORDER [None]
  - INFLUENZA LIKE ILLNESS [None]
  - MONOPLEGIA [None]
  - MULTIPLE SCLEROSIS RELAPSE [None]
